FAERS Safety Report 5301446-X (Version None)
Quarter: 2007Q2

REPORT INFORMATION
  Report Type: 
  Country: None (occurrence: None)
  Receive Date: 20070412
  Receipt Date: 20070402
  Transmission Date: 20071010
  Serious: Yes (Life-Threatening)
  Sender: FDA-Public Use
  Company Number: B0465291A

PATIENT
  Age: 59 Year
  Sex: Male

DRUGS (2)
  1. VENTOLIN [Suspect]
     Indication: ASTHMA
     Dosage: AS REQUIRED / INHALED
     Route: 055
  2. VENTOLIN [Suspect]
     Indication: ASTHMA
     Dosage: AS REQUIRED / INHALED
     Route: 055

REACTIONS (6)
  - APNOEA [None]
  - BRONCHOSPASM [None]
  - CHEST DISCOMFORT [None]
  - INFLUENZA LIKE ILLNESS [None]
  - LOSS OF CONSCIOUSNESS [None]
  - OBSTRUCTIVE AIRWAYS DISORDER [None]
